FAERS Safety Report 6491195-7 (Version None)
Quarter: 2009Q4

REPORT INFORMATION
  Report Type: 
  Country: None (occurrence: None)
  Receive Date: 20091208
  Receipt Date: 20091203
  Transmission Date: 20100525
  Serious: Yes (Death)
  Sender: FDA-Public Use
  Company Number: 2009US003754

PATIENT
  Age: 55 Year
  Sex: Male

DRUGS (21)
  1. PROGRAF [Suspect]
     Indication: BONE MARROW TRANSPLANT
     Dosage: 1.5 MG, BID, ORAL
     Route: 048
     Dates: start: 20090507, end: 20090701
  2. AUGMENTIN '125' [Concomitant]
  3. FLUCONAZOLE (FLUXONAZOLE) [Concomitant]
  4. ACYCLOVIR [Concomitant]
  5. BACTRIM [Concomitant]
  6. METOCLOPRAMIDE (MWTOCLOPRAMIDE) [Concomitant]
  7. COMPAZINE (PROCHLORPERAZINE MALEATE) [Concomitant]
  8. ALLOPURINOL [Concomitant]
  9. MS CONTIN [Concomitant]
  10. OXYCODONE HCL (OXYCODONE HYDROCHLORIDE) [Concomitant]
  11. MEGACE [Concomitant]
  12. CELEXA [Concomitant]
  13. AMLODIPINE [Concomitant]
  14. GABAPENTIN [Concomitant]
  15. OMEPRAZOLE [Concomitant]
  16. MAGNESIUM OXIDE (MAGNESIUM OXIDE) [Concomitant]
  17. MIRALAX [Concomitant]
  18. SENOKOT-S (DOCUSATE SODIUM, SENNA ALEXANDRINA) [Concomitant]
  19. DOCUSATE (DOCUSATE) [Concomitant]
  20. MORPHINE SULFAE (MORPHINE SULFATE) [Concomitant]
  21. ATIVAN [Concomitant]

REACTIONS (1)
  - MANTLE CELL LYMPHOMA RECURRENT [None]
